FAERS Safety Report 20208307 (Version 1)
Quarter: 2021Q4

REPORT INFORMATION
  Report Type: Spontaneous
  Country: US (occurrence: None)
  Receive Date: 20211220
  Receipt Date: 20211220
  Transmission Date: 20220303
  Serious: Yes (Hospitalization, Other)
  Sender: FDA-Public Use
  Company Number: None

PATIENT
  Age: 64 Year
  Sex: Male

DRUGS (4)
  1. OLANZAPINE [Suspect]
     Active Substance: OLANZAPINE
     Indication: Agitation
     Dosage: FREQUENCY : TWICE A DAY;?
     Route: 048
     Dates: start: 20211022, end: 20211026
  2. AMANTADINE [Concomitant]
     Active Substance: AMANTADINE
  3. ESCITALOPRAM [Concomitant]
     Active Substance: ESCITALOPRAM OXALATE
  4. ASPIRIN [Concomitant]
     Active Substance: ASPIRIN

REACTIONS (6)
  - Seizure [None]
  - Agitation [None]
  - Fall [None]
  - Head injury [None]
  - Vomiting [None]
  - Haemorrhage intracranial [None]

NARRATIVE: CASE EVENT DATE: 20211026
